FAERS Safety Report 5756647-3 (Version None)
Quarter: 2008Q2

REPORT INFORMATION
  Report Type: 
  Country: None (occurrence: None)
  Receive Date: 20080603
  Receipt Date: 20080530
  Transmission Date: 20081010
  Serious: Yes (Other)
  Sender: FDA-Public Use
  Company Number: TW-BRISTOL-MYERS SQUIBB COMPANY-14206619

PATIENT
  Age: 43 Year
  Sex: Male

DRUGS (6)
  1. EFAVIRENZ [Suspect]
     Indication: HIV INFECTION
  2. STAVUDINE [Suspect]
     Indication: HIV INFECTION
  3. LAMIVUDINE [Suspect]
     Indication: HIV INFECTION
  4. ETHAMBUTOL HYDROCHLORIDE [Suspect]
     Indication: TUBERCULOSIS
  5. RIFABUTIN [Suspect]
     Indication: TUBERCULOSIS
  6. LEVOFLOXACIN [Suspect]
     Indication: TUBERCULOSIS

REACTIONS (2)
  - IMMUNE RECONSTITUTION SYNDROME [None]
  - PERITONITIS [None]
